FAERS Safety Report 22346218 (Version 1)
Quarter: 2023Q2

REPORT INFORMATION
  Report Type: Spontaneous
  Country: CN (occurrence: CN)
  Receive Date: 20230519
  Receipt Date: 20230519
  Transmission Date: 20230722
  Serious: Yes (Other)
  Sender: FDA-Public Use
  Company Number: CN-009507513-2305CHN005157

PATIENT
  Age: 90 Year
  Sex: Male
  Weight: 63 kg

DRUGS (1)
  1. INVANZ [Suspect]
     Active Substance: ERTAPENEM SODIUM
     Indication: Urinary tract infection
     Dosage: 1 G, ONCE A DAY
     Route: 041
     Dates: start: 20230407, end: 20230411

REACTIONS (2)
  - Sphincter of Oddi dysfunction [Recovered/Resolved]
  - Constipation [Recovered/Resolved]

NARRATIVE: CASE EVENT DATE: 20230411
